FAERS Safety Report 8313703-3 (Version None)
Quarter: 2012Q2

REPORT INFORMATION
  Report Type: 
  Country: None (occurrence: None)
  Receive Date: 20120426
  Receipt Date: 20120419
  Transmission Date: 20120825
  Serious: Yes (Hospitalization, Other)
  Sender: FDA-Public Use
  Company Number: PHHY2012NL033872

PATIENT
  Sex: Female
  Weight: 70 kg

DRUGS (7)
  1. ASCAL CARDIO EFFERVESCENT [Concomitant]
     Dates: start: 20111223
  2. TEMAZEPAM CF [Concomitant]
     Dates: start: 20111223
  3. AMLODIPINE [Concomitant]
  4. SIMVASTATIN PCH [Concomitant]
     Dates: start: 20120215
  5. HYDROCHLOROTHIAZIDE [Concomitant]
  6. RASILEZ [Suspect]
     Indication: HYPERTENSION
     Dosage: 1 DF, BID
     Dates: start: 20110101, end: 20120308
  7. PERSANTIN [Concomitant]
     Dates: start: 20111223

REACTIONS (3)
  - TONGUE OEDEMA [None]
  - GLOSSODYNIA [None]
  - CEREBROVASCULAR ACCIDENT [None]
